FAERS Safety Report 7757756-X (Version None)
Quarter: 2011Q3

REPORT INFORMATION
  Report Type: 
  Country: None (occurrence: None)
  Receive Date: 20110917
  Receipt Date: 20110905
  Transmission Date: 20111222
  Serious: Yes (Hospitalization, Other)
  Sender: FDA-Public Use
  Company Number: US-MYLANLABS-2011S1018967

PATIENT
  Age: 23 Year
  Sex: Male

DRUGS (5)
  1. GLYCOPYRROLATE [Concomitant]
     Indication: TOOTH EXTRACTION
     Dosage: 0.2MG
     Route: 042
  2. VERSED [Suspect]
     Indication: TOOTH EXTRACTION
     Dosage: 9MG
     Route: 042
  3. FENTANYL [Suspect]
     Indication: TOOTH EXTRACTION
     Dosage: 150MICROG
     Route: 042
  4. PROPOFOL [Suspect]
     Indication: TOOTH EXTRACTION
     Dosage: 60MG
     Route: 042
  5. KETAMINE HCL [Suspect]
     Indication: TOOTH EXTRACTION
     Dosage: 50MG
     Route: 042

REACTIONS (2)
  - GAIT DISTURBANCE [None]
  - CONVERSION DISORDER [None]
